FAERS Safety Report 11793746 (Version 1)
Quarter: 2015Q4

REPORT INFORMATION
  Report Type: Spontaneous
  Country: None (occurrence: None)
  Receive Date: 20151201
  Receipt Date: 20151201
  Transmission Date: 20160305
  Serious: No
  Sender: FDA-Public Use
  Company Number: None

PATIENT
  Age: 63 Year
  Sex: Male
  Weight: 159.21 kg

DRUGS (21)
  1. LIPITOR [Concomitant]
     Active Substance: ATORVASTATIN CALCIUM
  2. TRICOR [Concomitant]
     Active Substance: FENOFIBRATE
  3. VITAMIN D [Concomitant]
     Active Substance: CHOLECALCIFEROL
  4. ENALAPRIL [Concomitant]
     Active Substance: ENALAPRIL
  5. VITAMIN B COMPLEX [Concomitant]
     Active Substance: CYANOCOBALAMIN\DEXPANTHENOL\NIACINAMIDE\PYRIDOXINE HYDROCHLORIDE\RIBOFLAVIN 5^-PHOSPHATE SODIUM\THIAMINE HYDROCHLORIDE\VITAMIN B COMPLEX
  6. ZINC [Concomitant]
     Active Substance: ZINC\ZINC CHLORIDE
  7. DILTIAZEM [Concomitant]
     Active Substance: DILTIAZEM
  8. HYDRALAZINE [Concomitant]
     Active Substance: HYDRALAZINE HYDROCHLORIDE
  9. COREG [Concomitant]
     Active Substance: CARVEDILOL
  10. FUROSEMIDE. [Concomitant]
     Active Substance: FUROSEMIDE
  11. PRANDIN [Concomitant]
     Active Substance: REPAGLINIDE
  12. OMEGA 3 [Concomitant]
     Active Substance: OMEGA-3 FATTY ACIDS
  13. ASPIRIN. [Concomitant]
     Active Substance: ASPIRIN
  14. TESTIM [Concomitant]
     Active Substance: TESTOSTERONE
  15. EFFEXOR [Concomitant]
     Active Substance: VENLAFAXINE HYDROCHLORIDE
  16. SEROQUEL [Concomitant]
     Active Substance: QUETIAPINE FUMARATE
  17. CINNAMON. [Concomitant]
     Active Substance: CINNAMON
  18. MULTI VITAMINS [Concomitant]
  19. VICTOZA [Concomitant]
     Active Substance: LIRAGLUTIDE
  20. HUMALOG [Concomitant]
     Active Substance: INSULIN LISPRO
  21. TRAMADOL. [Suspect]
     Active Substance: TRAMADOL
     Indication: PAIN
     Dosage: 3 PILLS TWICE A DAY AS NEEDED
     Route: 048
     Dates: start: 20151103, end: 20151129

REACTIONS (4)
  - Product substitution issue [None]
  - Product quality issue [None]
  - Abdominal discomfort [None]
  - Abdominal pain upper [None]

NARRATIVE: CASE EVENT DATE: 20151127
